FAERS Safety Report 7668562-9 (Version None)
Quarter: 2011Q3

REPORT INFORMATION
  Report Type: 
  Country: None (occurrence: None)
  Receive Date: 20110803
  Receipt Date: 20110725
  Transmission Date: 20111222
  Serious: Yes (Hospitalization)
  Sender: FDA-Public Use
  Company Number: 994158

PATIENT
  Age: 55 Year
  Sex: Female

DRUGS (11)
  1. ETOPOSIDE [Concomitant]
  2. CYTARABINE [Concomitant]
  3. GABAPENTIN [Concomitant]
  4. METHYLPREDNISOLONE [Concomitant]
  5. RITUXIMAB [Concomitant]
  6. OMEPRAZOLE [Concomitant]
  7. METHOTREXATE [Suspect]
     Indication: DIFFUSE LARGE B-CELL LYMPHOMA
     Dosage: 12.5 MG ONCE A DAY FOR A TOTAL OF 3 DOSES,
     Route: 037
  8. CISPLATIN [Concomitant]
  9. ALLOPURINOL [Concomitant]
  10. LIDOCAINE [Concomitant]
  11. VITAMIN B6 [Concomitant]

REACTIONS (3)
  - POSTERIOR REVERSIBLE ENCEPHALOPATHY SYNDROME [None]
  - NAUSEA [None]
  - VOMITING [None]
